FAERS Safety Report 5872119-X (Version None)
Quarter: 2008Q3

REPORT INFORMATION
  Report Type: 
  Country: None (occurrence: None)
  Receive Date: 20080905
  Receipt Date: 20080903
  Transmission Date: 20090109
  Serious: Yes (Hospitalization)
  Sender: FDA-Public Use
  Company Number: B0535776A

PATIENT
  Sex: Female

DRUGS (3)
  1. LAMICTAL [Suspect]
     Indication: EPILEPSY
     Dosage: 25MG PER DAY
     Route: 048
     Dates: start: 20070915, end: 20071013
  2. EFFEXOR [Suspect]
     Dates: end: 20071024
  3. CITALOPRAM HYDROBROMIDE [Suspect]

REACTIONS (9)
  - ANXIETY [None]
  - CONFUSIONAL STATE [None]
  - DELUSION [None]
  - DRUG INTERACTION [None]
  - HALLUCINATION [None]
  - INSOMNIA [None]
  - PSYCHOTIC DISORDER [None]
  - RESTLESSNESS [None]
  - STEREOTYPY [None]
